FAERS Safety Report 6692866-X (Version None)
Quarter: 2010Q2

REPORT INFORMATION
  Report Type: 
  Country: None (occurrence: None)
  Receive Date: 20100419
  Receipt Date: 20100413
  Transmission Date: 20101027
  Serious: Yes (Hospitalization, Other)
  Sender: FDA-Public Use
  Company Number: 2010SP021334

PATIENT
  Age: 66 Year
  Sex: Female
  Weight: 72.3 kg

DRUGS (6)
  1. TEMOZOLOMIDE [Suspect]
     Indication: MALIGNANT GLIOMA
     Dosage: 75 MG/M2
     Dates: end: 20100207
  2. BIBW 2992 [Suspect]
     Indication: MALIGNANT GLIOMA
     Dosage: 40 MG; QD; PO
     Route: 048
     Dates: start: 20091230, end: 20100207
  3. BENICAR HCT [Concomitant]
  4. SYNTHROID [Concomitant]
  5. ZOFRAN [Concomitant]
  6. COLACE [Concomitant]

REACTIONS (19)
  - ACUTE PRERENAL FAILURE [None]
  - BLOOD AMYLASE INCREASED [None]
  - BRAIN OEDEMA [None]
  - CARDIOMYOPATHY [None]
  - CEREBRAL HAEMORRHAGE [None]
  - CONTUSION [None]
  - DEHYDRATION [None]
  - DIARRHOEA [None]
  - ELECTROCARDIOGRAM QT PROLONGED [None]
  - ELECTROLYTE IMBALANCE [None]
  - FALL [None]
  - GAIT DISTURBANCE [None]
  - HEAD INJURY [None]
  - LOSS OF CONSCIOUSNESS [None]
  - PANCYTOPENIA [None]
  - SYNCOPE [None]
  - THROMBOSIS [None]
  - VISUAL FIELD DEFECT [None]
  - VOMITING [None]
